FAERS Safety Report 8062874-5 (Version None)
Quarter: 2012Q1

REPORT INFORMATION
  Report Type: 
  Country: None (occurrence: None)
  Receive Date: 20120123
  Receipt Date: 20120117
  Transmission Date: 20120608
  Serious: No
  Sender: FDA-Public Use
  Company Number: US-JNJFOC-20120106716

PATIENT
  Sex: Male
  Weight: 80.29 kg

DRUGS (1)
  1. INVEGA SUSTENNA [Suspect]
     Indication: PRODUCT USED FOR UNKNOWN INDICATION
     Route: 030
     Dates: start: 20110601, end: 20110101

REACTIONS (10)
  - TONGUE DISORDER [None]
  - TONSILLAR DISORDER [None]
  - EPISTAXIS [None]
  - PARANOIA [None]
  - POISONING [None]
  - TINNITUS [None]
  - SALIVARY HYPERSECRETION [None]
  - THROAT IRRITATION [None]
  - OROPHARYNGEAL PAIN [None]
  - HYPOAESTHESIA ORAL [None]
